FAERS Safety Report 10404411 (Version 1)
Quarter: 2014Q1

REPORT INFORMATION
  Report Type: Spontaneous
  Country: US (occurrence: None)
  Receive Date: 20140306
  Receipt Date: 20140306
  Transmission Date: 20141002
  Serious: Yes (Other)
  Sender: FDA-Public Use
  Company Number: 163-21880-08100934

PATIENT
  Age: 51 Year
  Sex: Male

DRUGS (8)
  1. REVLIMID (LENALIDOMIDE) (25 MILLIGRAM, CAPSULES) [Suspect]
     Indication: PLASMA CELL MYELOMA
     Dosage: 21 IN 28D
     Route: 048
     Dates: start: 20061204
  2. PREDNISONE (PREDNISONE) [Concomitant]
  3. LISINOPRIL (LISINOPRIL) [Concomitant]
  4. EFFERVESCEN T POTASSIUM ([POTASSIUM) [Concomitant]
  5. ACYCLOVIR (ACICLOVIR) [Concomitant]
  6. NEXIUM (ESOMEPRAZOLE) [Concomitant]
  7. MULTIVITAMINS (MULTIVITAMINS) [Concomitant]
  8. AMBIEN CR (ZOLPIDEM TARTRATE) [Concomitant]

REACTIONS (1)
  - Thrombosis [None]
